FAERS Safety Report 12092473 (Version 1)
Quarter: 2016Q1

REPORT INFORMATION
  Report Type: Spontaneous
  Country: US (occurrence: None)
  Receive Date: 20160217
  Receipt Date: 20160217
  Transmission Date: 20160526
  Serious: Yes (Hospitalization)
  Sender: FDA-Public Use
  Company Number: None

PATIENT
  Age: 93 Year
  Sex: Male
  Weight: 66.6 kg

DRUGS (2)
  1. LISINOPRIL. [Suspect]
     Active Substance: LISINOPRIL
     Indication: HYPERTENSION
     Route: 048
     Dates: start: 20150403, end: 20150924
  2. LISINIOPRIL [Suspect]
     Active Substance: LISINOPRIL
     Route: 048
     Dates: start: 20150403, end: 20150924

REACTIONS (1)
  - Angioedema [None]

NARRATIVE: CASE EVENT DATE: 20150924
